FAERS Safety Report 17195721 (Version 1)
Quarter: 2020Q1

REPORT INFORMATION
  Report Type: Spontaneous
  Country: US (occurrence: US)
  Receive Date: 20191223
  Receipt Date: 20191223
  Transmission Date: 20200409
  Serious: Yes (Other)
  Sender: FDA-Public Use
  Company Number: None

PATIENT
  Age: 68 Year
  Sex: Female
  Weight: 72 kg

DRUGS (2)
  1. SIMVASTATIN 20MG TABLET [Suspect]
     Active Substance: SIMVASTATIN
     Indication: TYPE V HYPERLIPIDAEMIA
     Route: 048
     Dates: start: 20191021, end: 20191223
  2. METOPROLOL SUCC ER 25MG TAB [Concomitant]
     Active Substance: METOPROLOL SUCCINATE
     Dates: start: 20191021

REACTIONS (1)
  - Pain in extremity [None]

NARRATIVE: CASE EVENT DATE: 20191223
